FAERS Safety Report 11330020 (Version 1)
Quarter: 2015Q3

REPORT INFORMATION
  Report Type: Spontaneous
  Country: DE (occurrence: DE)
  Receive Date: 20150803
  Receipt Date: 20150803
  Transmission Date: 20151125
  Serious: Yes (Life-Threatening, Hospitalization)
  Sender: FDA-Public Use
  Company Number: DE-BEH-2015052815

PATIENT
  Age: 65 Year
  Sex: Male

DRUGS (2)
  1. PRIVIGEN [Suspect]
     Active Substance: HUMAN IMMUNOGLOBULIN G
     Indication: CHRONIC LYMPHOCYTIC LEUKAEMIA
     Dosage: INFUSION RATE 5 G/60 MIN
     Route: 042
     Dates: start: 20150728, end: 20150728
  2. PRIVIGEN [Suspect]
     Active Substance: HUMAN IMMUNOGLOBULIN G
     Indication: CHRONIC LYMPHOCYTIC LEUKAEMIA
     Dosage: INFUSION RATE 5 G/60 MIN
     Route: 042
     Dates: start: 20150728, end: 20150728

REACTIONS (3)
  - Circulatory collapse [Recovered/Resolved]
  - Unresponsive to stimuli [Recovered/Resolved]
  - Pulse absent [Recovered/Resolved]

NARRATIVE: CASE EVENT DATE: 20150728
